FAERS Safety Report 4562438-1 (Version None)
Quarter: 2005Q1

REPORT INFORMATION
  Report Type: 
  Country: None (occurrence: None)
  Receive Date: 20050112
  Receipt Date: 20050112
  Transmission Date: 20050727
  Serious: Yes (Other)
  Sender: FDA-Public Use
  Company Number: None

PATIENT
  Sex: Female

DRUGS (1)
  1. KLONOPIN [Suspect]
     Indication: ANXIETY DISORDER
     Dosage: 1 MG TAB -1/2 TAB TID AND 1 1/2 TAB Q HS
     Dates: start: 19980101

REACTIONS (1)
  - DRUG INEFFECTIVE [None]
